FAERS Safety Report 24168356 (Version 1)
Quarter: 2024Q3

REPORT INFORMATION
  Report Type: Spontaneous
  Country: US (occurrence: None)
  Receive Date: 20240802
  Receipt Date: 20240802
  Transmission Date: 20241016
  Serious: Yes (Hospitalization)
  Sender: Public
  Company Number: None

PATIENT
  Age: 71 Year
  Sex: Male
  Weight: 94.2 kg

DRUGS (1)
  1. TECARTUS [Suspect]
     Active Substance: BREXUCABTAGENE AUTOLEUCEL

REACTIONS (4)
  - Immune effector cell-associated neurotoxicity syndrome [None]
  - Cytokine release syndrome [None]
  - Neurotoxicity [None]
  - Delirium [None]

NARRATIVE: CASE EVENT DATE: 20240619
